FAERS Safety Report 4620157-7 (Version None)
Quarter: 2005Q1

REPORT INFORMATION
  Report Type: 
  Country: None (occurrence: None)
  Receive Date: 20050322
  Receipt Date: 20050322
  Transmission Date: 20050727
  Serious: Yes (Other)
  Sender: FDA-Public Use
  Company Number: None

PATIENT
  Sex: Female
  Weight: 90.7194 kg

DRUGS (1)
  1. LIBRAX [Suspect]
     Indication: IRRITABLE BOWEL SYNDROME
     Dosage: ONE  TWICE A DAY

REACTIONS (1)
  - PHARMACEUTICAL PRODUCT COMPLAINT [None]
